FAERS Safety Report 12949241 (Version 3)
Quarter: 2018Q1

REPORT INFORMATION
  Report Type: Spontaneous
  Country: DE (occurrence: DE)
  Receive Date: 20161116
  Receipt Date: 20180312
  Transmission Date: 20180508
  Serious: Yes (Hospitalization, Other)
  Sender: FDA-Public Use
  Company Number: DE-OTSUKA-EU-2013-10079

PATIENT
  Sex: Male
  Weight: 70 kg

DRUGS (13)
  1. SAMSCA [Suspect]
     Active Substance: TOLVAPTAN
     Dosage: 15 MG, EVERY 5TH DAY
     Route: 065
  2. SAMSCA [Suspect]
     Active Substance: TOLVAPTAN
     Dosage: 30 MG, UNK
     Route: 065
  3. SAMSCA [Suspect]
     Active Substance: TOLVAPTAN
     Dosage: 7.5 MG, QD (SPLIT)
     Route: 065
  4. SAMSCA [Suspect]
     Active Substance: TOLVAPTAN
     Indication: INAPPROPRIATE ANTIDIURETIC HORMONE SECRETION
     Dosage: 7.5 MG, UNK
     Route: 065
  5. SAMSCA [Suspect]
     Active Substance: TOLVAPTAN
     Indication: HYPONATRAEMIA
     Dosage: 15 MG, UNK
     Route: 065
  6. SAMSCA [Suspect]
     Active Substance: TOLVAPTAN
     Dosage: 7.5 MG , UNK (SMALL INTERVALS)
     Route: 065
  7. SAMSCA [Suspect]
     Active Substance: TOLVAPTAN
     Dosage: 30 MG, UNK
     Route: 065
  8. SAMSCA [Suspect]
     Active Substance: TOLVAPTAN
     Dosage: 7.5 MG, UNK (EVERY TEN DAYS)
     Route: 065
  9. SAMSCA [Suspect]
     Active Substance: TOLVAPTAN
     Dosage: 15 MG, (ALWAYS EVERY 6-10 DAYS)
     Route: 065
  10. SAMSCA [Suspect]
     Active Substance: TOLVAPTAN
     Dosage: UNK, SLOW GRADUAL REDUCTION STARTING FROM 30MG
     Route: 065
  11. SAMSCA [Suspect]
     Active Substance: TOLVAPTAN
     Dosage: 7.5 MG, TID (THREE TIMES/DAY)
     Route: 065
  12. SAMSCA [Suspect]
     Active Substance: TOLVAPTAN
     Dosage: UNK, INCREASING FROM 7.5MG TO 30MG
     Route: 065
  13. SAMSCA [Suspect]
     Active Substance: TOLVAPTAN
     Dosage: 15 MG, QD (AFTER 4 DAYS)
     Route: 065

REACTIONS (8)
  - Blood sodium decreased [Unknown]
  - Inappropriate schedule of drug administration [Unknown]
  - Polyneuropathy [Unknown]
  - Influenza [Unknown]
  - Underdose [Unknown]
  - Dysphagia [Unknown]
  - Wrong technique in product usage process [Unknown]
  - Incorrect drug administration duration [Unknown]
